FAERS Safety Report 9506248 (Version 1)
Quarter: 2013Q1

REPORT INFORMATION
  Report Type: Spontaneous
  Country: US (occurrence: None)
  Receive Date: 20130301
  Receipt Date: 20130301
  Transmission Date: 20140127
  Serious: Yes (Hospitalization, Other)
  Sender: FDA-Public Use
  Company Number: PHEH2012US001643

PATIENT
  Age: 66 Year
  Sex: Male
  Weight: 99.5 kg

DRUGS (33)
  1. TEGRETOL [Suspect]
     Indication: MOOD SWINGS
     Route: 048
     Dates: start: 201106, end: 20110901
  2. VANCOMYCIN [Suspect]
     Indication: BACTERAEMIA
     Route: 042
     Dates: start: 20110924, end: 20111003
  3. CLONAZEPAM(CLONAZEPAM) [Concomitant]
  4. ALLOPURINOL(ALLOPURINOL) [Concomitant]
  5. NICOTINIC ACID (NICOTINIC ACID) [Concomitant]
  6. VITAMIN C [Concomitant]
  7. SERTRALINE HYDROCHLORIDE(SERTRALINE HYDROCHLORIDE) [Concomitant]
  8. LORATADINE(LORATADINE) [Concomitant]
  9. OMEGA 3 FISH OL(FISH OIL) [Concomitant]
  10. VITAMIN E (TOCOPHEROL) [Concomitant]
  11. IRON(IRON) [Concomitant]
  12. ASPIRIN(ACETYLSALICYLIC ACID) [Concomitant]
  13. ALLIUM SATIVUM EXTRACT (ALLIUM SATIVUM EXTRACT) [Concomitant]
  14. OMEPRAZOLE(OMEPRAZOLE) [Concomitant]
  15. TRAZODONE HYDROCHLORIDE(TRAZODONE HYDROCHLORIDE) [Concomitant]
  16. CALCIUM(CALCIUM) [Concomitant]
  17. FLAXSEED OIL(LINUM USITATISSIMUM SEED OIL) [Concomitant]
  18. VITAMIN B-COMPLEX(NO INGREDIENTS/SUBSTANCES) [Concomitant]
  19. COLCHICINE(COLCHICINE) [Concomitant]
  20. ALBUTEROL(SALBUTAMOL) [Concomitant]
  21. OXYCODONE(OXYCODONE) [Concomitant]
  22. SIMVASTATIN(SIMVASTATIN) [Concomitant]
  23. POLYTRIM(POLYMYXIN B SULFATE, TRIMETHOPRIM) [Concomitant]
  24. NYSTATIN(NYSTATIN) [Concomitant]
  25. MOMETASONE(MOMETASONE) [Concomitant]
  26. MICONAZOLE(MICONAZOLE) [Concomitant]
  27. MENTHOL W/METHYL SALICYLATE(MENTHOL, METHYL SALICYLATE) [Concomitant]
  28. LOSARTAN (LOSARTAN) [Concomitant]
  29. IPRATROPIUM(IPRATROPIUM) [Concomitant]
  30. DOCUSATE SODIUM (DOCUSATE SODIUM) [Concomitant]
  31. CARBAMIDE PEROXIDE (UREA HYDROGEN PEROZIDE) [Concomitant]
  32. ARTIFICIAL TEARS [Concomitant]
  33. ACETAMINOPHEN(PARACETAMOL) [Concomitant]

REACTIONS (11)
  - Rash morbilliform [None]
  - Rash maculo-papular [None]
  - Rash erythematous [None]
  - Rash pruritic [None]
  - Bacteraemia [None]
  - Exfoliative rash [None]
  - Red man syndrome [None]
  - Renal failure acute [None]
  - Blood creatinine increased [None]
  - Leukocytosis [None]
  - Ear pain [None]
